FAERS Safety Report 6119323-3 (Version None)
Quarter: 2009Q1

REPORT INFORMATION
  Report Type: 
  Country: None (occurrence: None)
  Receive Date: 20090316
  Receipt Date: 20090310
  Transmission Date: 20090719
  Serious: Yes (Death, Other)
  Sender: FDA-Public Use
  Company Number: PHHY2009JP07056

PATIENT
  Sex: Female
  Weight: 20 kg

DRUGS (11)
  1. EXJADE [Suspect]
     Indication: IRON OVERLOAD
     Dosage: 500 MG, QD
     Route: 048
     Dates: start: 20081015
  2. EXJADE [Suspect]
     Indication: APLASTIC ANAEMIA
  3. NEORAL [Concomitant]
     Indication: APLASTIC ANAEMIA
     Dosage: 40 MG
     Route: 048
     Dates: start: 19990628
  4. BONZOL [Concomitant]
     Indication: APLASTIC ANAEMIA
     Dosage: 50 MG
     Route: 048
     Dates: start: 19990716
  5. PREDONINE [Concomitant]
     Indication: APLASTIC ANAEMIA
     Dosage: 5 MG
     Route: 048
     Dates: start: 20020315, end: 20081205
  6. BAKTAR [Concomitant]
     Dosage: 1 G
     Route: 048
     Dates: start: 20020315
  7. EXCEGRAN [Concomitant]
     Indication: EPILEPSY
     Dosage: 250 MG
     Route: 048
     Dates: start: 20070311
  8. PHENOBARBITAL TAB [Concomitant]
     Indication: EPILEPSY
     Dosage: 80 MG
     Route: 048
     Dates: start: 20060401
  9. MYSTAN AZWELL [Concomitant]
     Indication: EPILEPSY
     Dosage: 6 MG
     Route: 048
     Dates: start: 20070702
  10. RED BLOOD CELLS [Concomitant]
  11. PLATELETS [Concomitant]

REACTIONS (11)
  - ALANINE AMINOTRANSFERASE INCREASED [None]
  - ASPARTATE AMINOTRANSFERASE INCREASED [None]
  - BLOOD LACTATE DEHYDROGENASE INCREASED [None]
  - BLOOD UREA INCREASED [None]
  - C-REACTIVE PROTEIN INCREASED [None]
  - COUGH [None]
  - DISEASE PROGRESSION [None]
  - NEUTROPENIA [None]
  - PNEUMONIA [None]
  - PYREXIA [None]
  - RESPIRATORY FAILURE [None]
